FAERS Safety Report 10070529 (Version 8)
Quarter: 2015Q1

REPORT INFORMATION
  Report Type: Not Available
  Country: CH (occurrence: CH)
  Receive Date: 20140410
  Receipt Date: 20150130
  Transmission Date: 20150720
  Serious: Yes (Death, Life-Threatening, Hospitalization, Other)
  Sender: FDA-Public Use
  Company Number: CH-BEH-2014041565

PATIENT
  Age: 70 Year
  Sex: Female

DRUGS (21)
  1. PRIVIGEN [Suspect]
     Active Substance: HUMAN IMMUNOGLOBULIN G
  2. LEUKERAN [Suspect]
     Active Substance: CHLORAMBUCIL
     Indication: CHRONIC LYMPHOCYTIC LEUKAEMIA
     Dosage: THERAPY DATES: MAR 2003 - APR 2003 AND  FEB 2004 - APR 2004
     Route: 048
  3. ONCOVIN [Suspect]
     Active Substance: VINCRISTINE SULFATE
     Indication: CHRONIC LYMPHOCYTIC LEUKAEMIA
     Dosage: START DATE: JAN 2008, STOP DATE: MAY 2008
     Route: 041
  4. PREDNISON [Suspect]
     Active Substance: PREDNISONE
     Indication: CHRONIC LYMPHOCYTIC LEUKAEMIA
     Dosage: START DATE: MAR 2003
     Route: 048
  5. PRIVIGEN [Suspect]
     Active Substance: HUMAN IMMUNOGLOBULIN G
  6. PRIVIGEN [Suspect]
     Active Substance: HUMAN IMMUNOGLOBULIN G
  7. MABTHERA [Suspect]
     Active Substance: RITUXIMAB
     Indication: CHRONIC LYMPHOCYTIC LEUKAEMIA
     Dosage: START DATE: JAN 2008
     Route: 041
  8. PRIVIGEN [Suspect]
     Active Substance: HUMAN IMMUNOGLOBULIN G
  9. PRIVIGEN [Suspect]
     Active Substance: HUMAN IMMUNOGLOBULIN G
  10. PRIVIGEN [Suspect]
     Active Substance: HUMAN IMMUNOGLOBULIN G
  11. PRIVIGEN [Suspect]
     Active Substance: HUMAN IMMUNOGLOBULIN G
  12. FLUDARABIN [Suspect]
     Active Substance: FLUDARABINE PHOSPHATE
     Indication: CHRONIC LYMPHOCYTIC LEUKAEMIA
     Dosage: 9 SINGLE DOSES (EACH 40 MG); TOTAL 360 MG; 4 CYCLES
     Route: 042
     Dates: start: 20130829, end: 20131127
  13. FLUDARABIN [Suspect]
     Active Substance: FLUDARABINE PHOSPHATE
     Indication: CHRONIC LYMPHOCYTIC LEUKAEMIA
     Dosage: START DATE: OCT 2004, STOP DATE: JAN 2005; 4 CYCLES
     Route: 042
  14. PRIVIGEN [Suspect]
     Active Substance: HUMAN IMMUNOGLOBULIN G
     Indication: SECONDARY IMMUNODEFICIENCY
     Dosage: START DATE: JAN 2009, STOP DATE: NOV 2011
     Route: 041
  15. PRIVIGEN [Suspect]
     Active Substance: HUMAN IMMUNOGLOBULIN G
  16. CYCLOPHOSPHAMID [Suspect]
     Active Substance: CYCLOPHOSPHAMIDE
     Indication: CHRONIC LYMPHOCYTIC LEUKAEMIA
     Dosage: START DATE: JAN 2008
     Route: 065
  17. RIBOMUSTIN [Suspect]
     Active Substance: BENDAMUSTINE HYDROCHLORIDE
     Indication: CHRONIC LYMPHOCYTIC LEUKAEMIA
     Dosage: START DATE: APR 2012, STOP DATE: SEP 2012
     Route: 041
  18. PRIVIGEN [Suspect]
     Active Substance: HUMAN IMMUNOGLOBULIN G
  19. PRIVIGEN [Suspect]
     Active Substance: HUMAN IMMUNOGLOBULIN G
  20. REDIMUNE [Suspect]
     Active Substance: HUMAN IMMUNOGLOBULIN G
     Indication: SECONDARY IMMUNODEFICIENCY
     Dosage: THERAPY DATES: OCT 2004 -JAN 2005 AND  FEB 2006 - AUG 2008
     Route: 041
  21. INTRATECT [Suspect]
     Active Substance: HUMAN IMMUNOGLOBULIN G
     Indication: SECONDARY IMMUNODEFICIENCY
     Dosage: START DATE: DEC 2011, STOP DATE: DEC 2013
     Route: 041

REACTIONS (11)
  - Creutzfeldt-Jakob disease [Fatal]
  - Hearing impaired [Fatal]
  - Dementia [Fatal]
  - Anterograde amnesia [Fatal]
  - Blindness cortical [Fatal]
  - Visual impairment [Fatal]
  - Ataxia [Fatal]
  - Visual impairment [Fatal]
  - Cerebellar syndrome [Fatal]
  - Dementia Alzheimer^s type [Fatal]
  - Osmotic demyelination syndrome [Fatal]

NARRATIVE: CASE EVENT DATE: 2014
